FAERS Safety Report 4959328-9 (Version None)
Quarter: 2006Q1

REPORT INFORMATION
  Report Type: 
  Country: None (occurrence: None)
  Receive Date: 20060331
  Receipt Date: 20060321
  Transmission Date: 20060701
  Serious: Yes (Other)
  Sender: FDA-Public Use
  Company Number: FR-JNJFOC-20060203818

PATIENT
  Sex: Male

DRUGS (4)
  1. RISPERDAL [Suspect]
     Dosage: 1MG IN THE MORNING AND 1.5MG AT MIDDAY
     Route: 048
  2. RISPERDAL [Suspect]
     Route: 048
  3. RISPERDAL [Suspect]
     Route: 048
  4. RISPERDAL [Suspect]
     Route: 048

REACTIONS (3)
  - GAZE PALSY [None]
  - HYPERTONIA [None]
  - SACCADIC EYE MOVEMENT [None]
